FAERS Safety Report 16381380 (Version 1)
Quarter: 2019Q2

REPORT INFORMATION
  Report Type: Spontaneous
  Country: MM (occurrence: MM)
  Receive Date: 20190603
  Receipt Date: 20190603
  Transmission Date: 20190711
  Serious: Yes (Other)
  Sender: FDA-Public Use
  Company Number: MM-SUN PHARMACEUTICAL INDUSTRIES LTD-2019R1-209416

PATIENT
  Age: 80 Year
  Sex: Male

DRUGS (1)
  1. PANTOCID (PANTOPRAZOLE) [Suspect]
     Active Substance: PANTOPRAZOLE
     Indication: PRODUCT USED FOR UNKNOWN INDICATION
     Route: 042

REACTIONS (1)
  - Abscess [Unknown]
